FAERS Safety Report 17581014 (Version 1)
Quarter: 2020Q1

REPORT INFORMATION
  Report Type: Spontaneous
  Country: DE (occurrence: DE)
  Receive Date: 20200325
  Receipt Date: 20200325
  Transmission Date: 20200409
  Serious: Yes (Other)
  Sender: FDA-Public Use
  Company Number: NVSC2020DE025721

PATIENT
  Sex: Female

DRUGS (2)
  1. VOLON A [Concomitant]
     Indication: SEASONAL ALLERGY
     Dosage: UNK
     Route: 065
  2. ILARIS [Suspect]
     Active Substance: CANAKINUMAB
     Indication: CRYOPYRIN ASSOCIATED PERIODIC SYNDROME
     Dosage: 150 MG
     Route: 065
     Dates: start: 20191015

REACTIONS (5)
  - Pyrexia [Unknown]
  - Nasopharyngitis [Unknown]
  - Paraesthesia [Unknown]
  - Pneumonia [Recovered/Resolved]
  - Diarrhoea [Recovered/Resolved]

NARRATIVE: CASE EVENT DATE: 20200128
